FAERS Safety Report 20572411 (Version 1)
Quarter: 2022Q1

REPORT INFORMATION
  Report Type: Spontaneous
  Country: JP (occurrence: JP)
  Receive Date: 20220309
  Receipt Date: 20220309
  Transmission Date: 20220423
  Serious: Yes (Other)
  Sender: FDA-Public Use
  Company Number: JP-CELGENE-JPN-20220207640

PATIENT
  Age: 69 Year
  Sex: Female

DRUGS (1)
  1. ABRAXANE [Suspect]
     Active Substance: PACLITAXEL
     Indication: Pancreatic carcinoma
     Route: 065

REACTIONS (1)
  - Cholangitis [Unknown]
